FAERS Safety Report 23256075 (Version 5)
Quarter: 2024Q4

REPORT INFORMATION
  Report Type: Report from Study
  Country: DE (occurrence: DE)
  Receive Date: 20231204
  Receipt Date: 20241024
  Transmission Date: 20250115
  Serious: Yes (Other)
  Sender: ROCHE
  Company Number: DE-ROCHE-2332620

PATIENT
  Age: 48 Year
  Sex: Female
  Weight: 63 kg

DRUGS (14)
  1. OCREVUS [Suspect]
     Active Substance: OCRELIZUMAB
     Indication: Relapsing multiple sclerosis
     Route: 042
     Dates: start: 20180906, end: 20180920
  2. OCREVUS [Suspect]
     Active Substance: OCRELIZUMAB
     Route: 042
     Dates: start: 20190328
  3. PFIZER-BIONTECH COVID-19 VACCINE [Concomitant]
     Active Substance: TOZINAMERAN
     Indication: Prophylaxis
     Route: 030
     Dates: start: 202106, end: 202106
  4. PFIZER-BIONTECH COVID-19 VACCINE [Concomitant]
     Active Substance: TOZINAMERAN
     Indication: COVID-19 immunisation
     Route: 030
     Dates: start: 20210730, end: 20210730
  5. PFIZER-BIONTECH COVID-19 VACCINE [Concomitant]
     Active Substance: TOZINAMERAN
     Route: 030
     Dates: start: 20211218, end: 20211218
  6. DOXYLAMINE SUCCINATE [Concomitant]
     Active Substance: DOXYLAMINE SUCCINATE
     Indication: Fatigue
     Dosage: DEFINITION OF THE INTERVAL: AS REQUIRED
     Route: 048
  7. CIMETIDINE [Concomitant]
     Active Substance: CIMETIDINE
     Indication: Premedication
     Route: 042
     Dates: start: 20200928
  8. RANITIDINE HYDROCHLORIDE [Concomitant]
     Active Substance: RANITIDINE HYDROCHLORIDE
     Indication: Premedication
     Route: 042
     Dates: start: 20180906, end: 20200928
  9. METAMIZOLE [Concomitant]
     Active Substance: METAMIZOLE
     Indication: Prophylaxis
  10. MELATONIN [Concomitant]
     Active Substance: MELATONIN
     Indication: Fatigue
     Route: 048
  11. Oestrogen gel [Concomitant]
     Indication: Menopause
     Route: 067
     Dates: start: 202406
  12. PROGESTERONE [Concomitant]
     Active Substance: PROGESTERONE
     Indication: Menopause
     Route: 048
     Dates: start: 202406
  13. MIRTAZAPINE [Concomitant]
     Active Substance: MIRTAZAPINE
     Indication: Menopause
     Route: 048
     Dates: start: 20240425
  14. CHOLECALCIFEROL [Concomitant]
     Active Substance: CHOLECALCIFEROL
     Indication: Vitamin D deficiency
     Route: 048

REACTIONS (7)
  - Neutrophil count decreased [Recovered/Resolved]
  - Infusion related reaction [Recovered/Resolved]
  - White blood cell count decreased [Unknown]
  - Lymphopenia [Recovered/Resolved]
  - Lymphocyte count decreased [Unknown]
  - Neutrophil count decreased [Unknown]
  - Back pain [Unknown]

NARRATIVE: CASE EVENT DATE: 20180920
